FAERS Safety Report 7930979-2 (Version None)
Quarter: 2011Q4

REPORT INFORMATION
  Report Type: 
  Country: None (occurrence: None)
  Receive Date: 20111118
  Receipt Date: 20111118
  Transmission Date: 20120403
  Serious: Yes (Hospitalization)
  Sender: FDA-Public Use
  Company Number: None

PATIENT
  Sex: Female
  Weight: 103 kg

DRUGS (4)
  1. DOXORUBICIN HCL [Suspect]
     Dosage: 1320 MG
     Dates: end: 20110104
  2. HYDROCHLOROTHIAZIDE [Concomitant]
  3. NEULASTA [Suspect]
     Dosage: 6 MG
     Dates: end: 20111106
  4. CYCLOPHOSPHAMIDE [Suspect]

REACTIONS (6)
  - SYNCOPE [None]
  - FALL [None]
  - BODY TEMPERATURE INCREASED [None]
  - PANCYTOPENIA [None]
  - MALAISE [None]
  - HYPOKALAEMIA [None]
